FAERS Safety Report 9278733 (Version 1)
Quarter: 2013Q2

REPORT INFORMATION
  Report Type: Spontaneous
  Country: US (occurrence: US)
  Receive Date: 20130508
  Receipt Date: 20130508
  Transmission Date: 20140414
  Serious: Yes (Hospitalization)
  Sender: FDA-Public Use
  Company Number: US-ASTRAZENECA-2013SE30250

PATIENT
  Age: 40 Year
  Sex: Male

DRUGS (1)
  1. CRESTOR [Suspect]
     Indication: DYSLIPIDAEMIA
     Route: 048
     Dates: end: 201304

REACTIONS (2)
  - Hepatic enzyme increased [Recovering/Resolving]
  - Blood bilirubin increased [Recovering/Resolving]
